FAERS Safety Report 11393272 (Version 2)
Quarter: 2015Q4

REPORT INFORMATION
  Report Type: Report from Study
  Country: JP (occurrence: JP)
  Receive Date: 20150818
  Receipt Date: 20151013
  Transmission Date: 20160304
  Serious: Yes (Hospitalization, Other)
  Sender: FDA-Public Use
  Company Number: PHHY2012JP104411

PATIENT
  Age: 47 Year
  Sex: Female
  Weight: 54 kg

DRUGS (33)
  1. CLOZARIL [Suspect]
     Active Substance: CLOZAPINE
     Dosage: 450 MG, QD
     Route: 048
     Dates: start: 20120629, end: 20120701
  2. PROPERICIAZINE [Concomitant]
     Dosage: 30 MG, QD
     Route: 048
     Dates: start: 20110908, end: 20110914
  3. MEILAX [Concomitant]
     Active Substance: ETHYL LOFLAZEPATE
     Indication: SCHIZOPHRENIA, PARANOID TYPE
     Dosage: 2 MG, QD
     Route: 048
     Dates: start: 20120902
  4. CLOZARIL [Suspect]
     Active Substance: CLOZAPINE
     Dosage: 125 MG, QD
     Route: 048
     Dates: start: 20110913, end: 20110914
  5. CLOZARIL [Suspect]
     Active Substance: CLOZAPINE
     Dosage: 350 MG, QD
     Route: 048
     Dates: start: 20120619, end: 20120621
  6. CLOZARIL [Suspect]
     Active Substance: CLOZAPINE
     Dosage: 400 MG, QD
     Route: 048
     Dates: start: 20120803, end: 20130203
  7. TRIFLUID [Concomitant]
     Active Substance: CALCIUM CHLORIDE\DEXTROSE\ELECTROLYTES NOS\FRUCTOSE\XYLITOL\ZINC SULFATE
     Indication: SCHIZOPHRENIA, PARANOID TYPE
     Dosage: 1000 ML, QD
     Route: 065
     Dates: start: 20120618, end: 20120725
  8. CLOZARIL [Suspect]
     Active Substance: CLOZAPINE
     Dosage: 75 MG, QD
     Route: 048
     Dates: start: 20110908, end: 20110910
  9. CLOZARIL [Suspect]
     Active Substance: CLOZAPINE
     Dosage: 300 MG, QD
     Route: 048
     Dates: start: 20120227, end: 20120618
  10. FLUNITRAZEPAM [Concomitant]
     Active Substance: FLUNITRAZEPAM
     Indication: SCHIZOPHRENIA, PARANOID TYPE
     Dosage: 4 MG, QD
     Route: 048
  11. CLOZARIL [Suspect]
     Active Substance: CLOZAPINE
     Dosage: 25 MG, QD
     Route: 048
     Dates: start: 20110902, end: 20110904
  12. CLOZARIL [Suspect]
     Active Substance: CLOZAPINE
     Dosage: 300 MG, QD
     Route: 048
     Dates: start: 20110922, end: 20111201
  13. CLOZARIL [Suspect]
     Active Substance: CLOZAPINE
     Dosage: 550 MG, QD
     Route: 048
     Dates: start: 20120706, end: 20120708
  14. CLOZARIL [Suspect]
     Active Substance: CLOZAPINE
     Dosage: 600 MG, QD
     Route: 048
     Dates: start: 20120709, end: 20120802
  15. CLOZARIL [Suspect]
     Active Substance: CLOZAPINE
     Dosage: 100 MG, QD
     Route: 048
     Dates: start: 20110911, end: 20110912
  16. CLOZARIL [Suspect]
     Active Substance: CLOZAPINE
     Dosage: 500 MG, QD
     Route: 048
     Dates: start: 20130204
  17. PROPERICIAZINE [Concomitant]
     Dosage: 20 MG, QD
     Route: 048
     Dates: start: 20110915, end: 20110921
  18. PROPERICIAZINE [Concomitant]
     Dosage: 10 MG, QD
     Route: 048
     Dates: start: 20110922, end: 20110928
  19. SILECE [Concomitant]
     Active Substance: FLUNITRAZEPAM
     Indication: SCHIZOPHRENIA, PARANOID TYPE
     Dosage: 4 MG, QD
     Route: 048
     Dates: start: 20120902
  20. CLOZARIL [Suspect]
     Active Substance: CLOZAPINE
     Indication: SCHIZOPHRENIA, PARANOID TYPE
     Dosage: 12.5 MG, QD
     Route: 048
     Dates: start: 20110901, end: 20110901
  21. CLOZARIL [Suspect]
     Active Substance: CLOZAPINE
     Dosage: 50 MG, QD
     Route: 048
     Dates: start: 20110905, end: 20110907
  22. CLOZARIL [Suspect]
     Active Substance: CLOZAPINE
     Dosage: 200 MG, QD
     Route: 048
     Dates: start: 20110919, end: 20110921
  23. BLONANSERIN [Concomitant]
     Active Substance: BLONANSERIN
     Indication: SCHIZOPHRENIA, PARANOID TYPE
     Dosage: 8 MG, QD
     Route: 048
     Dates: end: 20110907
  24. PROPERICIAZINE [Concomitant]
     Indication: SCHIZOPHRENIA, PARANOID TYPE
     Dosage: 40 MG, QD
     Route: 048
     Dates: end: 20110907
  25. BIPERIDEN LACTATE [Concomitant]
     Active Substance: BIPERIDEN LACTATE
     Indication: SCHIZOPHRENIA, PARANOID TYPE
     Dosage: 3 MG, QD
     Route: 048
  26. PANTETHINE [Concomitant]
     Active Substance: PANTETHINE
     Indication: SCHIZOPHRENIA, PARANOID TYPE
     Dosage: 600 MG, QD
     Route: 048
  27. BROMAZEPAM [Concomitant]
     Active Substance: BROMAZEPAM
     Indication: SCHIZOPHRENIA, PARANOID TYPE
     Dosage: 5 MG, QD
     Route: 048
     Dates: end: 20120617
  28. SOLDEM 3A [Concomitant]
     Active Substance: CARBOHYDRATES\POTASSIUM CHLORIDE\SODIUM CHLORIDE\SODIUM LACTATE
     Indication: SCHIZOPHRENIA, PARANOID TYPE
     Dosage: 500 ML, QD
     Route: 048
     Dates: start: 20120618, end: 20120725
  29. CLOZARIL [Suspect]
     Active Substance: CLOZAPINE
     Dosage: 150 MG, QD
     Route: 048
     Dates: start: 20110915, end: 20110918
  30. CLOZARIL [Suspect]
     Active Substance: CLOZAPINE
     Dosage: 400 MG, QD
     Route: 048
     Dates: start: 20120622, end: 20120628
  31. CLOZARIL [Suspect]
     Active Substance: CLOZAPINE
     Dosage: 500 MG, QD
     Route: 048
     Dates: start: 20120702, end: 20120705
  32. CINAL [Concomitant]
     Active Substance: ASCORBIC ACID\CALCIUM PANTOTHENATE
     Indication: SCHIZOPHRENIA, PARANOID TYPE
     Dosage: 3000 MG, UNK
     Route: 048
  33. RACOL [Concomitant]
     Active Substance: AMINO ACIDS\DEXTROSE\ELECTROLYTES NOS
     Indication: SCHIZOPHRENIA, PARANOID TYPE
     Dosage: 600 ML, QD
     Route: 048
     Dates: start: 20120626, end: 20120802

REACTIONS (7)
  - Abdominal pain [Unknown]
  - Appendicitis [Recovered/Resolved]
  - Tremor [Recovering/Resolving]
  - Constipation [Not Recovered/Not Resolved]
  - Parkinsonism [Not Recovered/Not Resolved]
  - Salivary hypersecretion [Recovering/Resolving]
  - Somnolence [Recovering/Resolving]

NARRATIVE: CASE EVENT DATE: 20120731
